FAERS Safety Report 12281641 (Version 2)
Quarter: 2016Q3

REPORT INFORMATION
  Report Type: Spontaneous
  Country: US (occurrence: US)
  Receive Date: 20160419
  Receipt Date: 20160715
  Transmission Date: 20161109
  Serious: No
  Sender: FDA-Public Use
  Company Number: US-TEVA-641391USA

PATIENT
  Age: 34 Year
  Sex: Female

DRUGS (1)
  1. ZECUITY [Suspect]
     Active Substance: SUMATRIPTAN SUCCINATE
     Route: 062
     Dates: start: 201602, end: 201602

REACTIONS (3)
  - Somnolence [Recovered/Resolved]
  - Incorrect drug administration duration [Unknown]
  - Dizziness [Unknown]

NARRATIVE: CASE EVENT DATE: 201602
